FAERS Safety Report 14190474 (Version 1)
Quarter: 2017Q4

REPORT INFORMATION
  Report Type: Report from Study
  Country: GB (occurrence: GB)
  Receive Date: 20171115
  Receipt Date: 20171115
  Transmission Date: 20180321
  Serious: Yes (Other)
  Sender: FDA-Public Use
  Company Number: GB-JNJFOC-20171113628

PATIENT
  Age: 61 Year
  Sex: Male

DRUGS (1)
  1. SIMPONI [Suspect]
     Active Substance: GOLIMUMAB
     Indication: PRODUCT USED FOR UNKNOWN INDICATION
     Route: 058

REACTIONS (6)
  - Constipation [Unknown]
  - Arthralgia [Unknown]
  - Pruritus [Unknown]
  - Ear discomfort [Unknown]
  - Dyschezia [Unknown]
  - Haematochezia [Unknown]

NARRATIVE: CASE EVENT DATE: 201710
